FAERS Safety Report 14914320 (Version 1)
Quarter: 2018Q2

REPORT INFORMATION
  Report Type: Report from Study
  Country: US (occurrence: US)
  Receive Date: 20180518
  Receipt Date: 20180518
  Transmission Date: 20180711
  Serious: Yes (Other)
  Sender: FDA-Public Use
  Company Number: US-JAZZ-2018-US-001183

PATIENT
  Age: 28 Year
  Sex: Female

DRUGS (8)
  1. AMOXICILLIN. [Concomitant]
     Active Substance: AMOXICILLIN
  2. XYREM [Suspect]
     Active Substance: SODIUM OXYBATE
     Dosage: 2 G, QD
     Route: 048
     Dates: start: 2018
  3. FLUTICASONE. [Concomitant]
     Active Substance: FLUTICASONE
  4. XYREM [Suspect]
     Active Substance: SODIUM OXYBATE
     Dosage: 2.5 G, QD
     Route: 048
     Dates: start: 2018
  5. ADDERALL [Suspect]
     Active Substance: AMPHETAMINE ASPARTATE\AMPHETAMINE SULFATE\DEXTROAMPHETAMINE SACCHARATE\DEXTROAMPHETAMINE SULFATE
     Indication: PRODUCT USED FOR UNKNOWN INDICATION
  6. GLICLAZIDE [Concomitant]
     Active Substance: GLICLAZIDE
  7. XYREM [Suspect]
     Active Substance: SODIUM OXYBATE
     Indication: NARCOLEPSY
     Dosage: 2 G, BID
     Route: 048
     Dates: start: 20180113, end: 2018
  8. MODAFINIL. [Concomitant]
     Active Substance: MODAFINIL

REACTIONS (11)
  - Weight decreased [Unknown]
  - Somnolence [Not Recovered/Not Resolved]
  - Anxiety [Unknown]
  - Condition aggravated [Not Recovered/Not Resolved]
  - Withdrawal syndrome [Unknown]
  - Decreased appetite [Not Recovered/Not Resolved]
  - Restless legs syndrome [Not Recovered/Not Resolved]
  - Nightmare [Not Recovered/Not Resolved]
  - Condition aggravated [Not Recovered/Not Resolved]
  - Insomnia [Unknown]
  - Pre-existing condition improved [Unknown]

NARRATIVE: CASE EVENT DATE: 201801
